FAERS Safety Report 10975295 (Version 1)
Quarter: 2015Q2

REPORT INFORMATION
  Report Type: Spontaneous
  Country: US (occurrence: US)
  Receive Date: 20150401
  Receipt Date: 20150401
  Transmission Date: 20150821
  Serious: Yes (Death, Hospitalization, Other)
  Sender: FDA-Public Use
  Company Number: US-TEVA-551233USA

PATIENT
  Age: 78 Year
  Sex: Female

DRUGS (10)
  1. FENTANYL. [Suspect]
     Active Substance: FENTANYL
     Indication: PRODUCT USED FOR UNKNOWN INDICATION
     Route: 048
  2. DIAZEPAM. [Concomitant]
     Active Substance: DIAZEPAM
  3. ENALAPRIL [Concomitant]
     Active Substance: ENALAPRIL
  4. HYDROMORPHONE [Suspect]
     Active Substance: HYDROMORPHONE
     Route: 065
  5. METFORMIN [Concomitant]
     Active Substance: METFORMIN HYDROCHLORIDE
  6. BUPROPION [Concomitant]
     Active Substance: BUPROPION
  7. AMLODIPINE [Concomitant]
     Active Substance: AMLODIPINE BESYLATE
  8. SIMVASTATIN. [Concomitant]
     Active Substance: SIMVASTATIN
  9. PAROXETINE [Concomitant]
     Active Substance: PAROXETINE\PAROXETINE HYDROCHLORIDE
  10. FENTANYL. [Suspect]
     Active Substance: FENTANYL
     Indication: PRODUCT USED FOR UNKNOWN INDICATION
     Route: 065

REACTIONS (6)
  - Atrial fibrillation [Unknown]
  - Overdose [Unknown]
  - Mental status changes [Unknown]
  - Respiratory failure [Not Recovered/Not Resolved]
  - Pleural effusion [Unknown]
  - Death [Fatal]
